FAERS Safety Report 18500154 (Version 12)
Quarter: 2021Q2

REPORT INFORMATION
  Report Type: Report from Study
  Country: None (occurrence: DE)
  Receive Date: 20201113
  Receipt Date: 20210406
  Transmission Date: 20210717
  Serious: Yes (Hospitalization, Other)
  Sender: FDA-Public Use
  Company Number: DE-ABBVIE-20K-062-3647115-00

PATIENT
  Age: 62 Year
  Sex: Female

DRUGS (16)
  1. VITAMIN D [Concomitant]
     Active Substance: VITAMIN D NOS
     Indication: PRODUCT USED FOR UNKNOWN INDICATION
  2. FOLIC ACID. [Concomitant]
     Active Substance: FOLIC ACID
     Indication: PRODUCT USED FOR UNKNOWN INDICATION
  3. DUODOPA [Suspect]
     Active Substance: CARBIDOPA\LEVODOPA
     Dosage: MD 2.4 ML; CRD 1.9 ML/H; ED 1 ML
     Route: 050
     Dates: start: 202102, end: 2021
  4. DUODOPA [Suspect]
     Active Substance: CARBIDOPA\LEVODOPA
     Dosage: MD 2.8 ML; CRD 2.3 ML/H; ED 1.0 ML
     Route: 050
     Dates: start: 202103, end: 202103
  5. DUODOPA [Suspect]
     Active Substance: CARBIDOPA\LEVODOPA
     Dosage: MD 3.6 ML; CRD 2.7 ML/H; ED 1.0 ML
     Route: 050
     Dates: start: 202103
  6. DUODOPA [Suspect]
     Active Substance: CARBIDOPA\LEVODOPA
     Dosage: MD 1.4 ML; CRD 1.9 ML/H; ED 1 ML
     Route: 050
     Dates: start: 202102, end: 202102
  7. DUODOPA [Suspect]
     Active Substance: CARBIDOPA\LEVODOPA
     Dosage: MD 2.8 ML; CRD 2.5 ML/H; ED 1.0 ML
     Route: 050
     Dates: start: 202103, end: 20210316
  8. DUODOPA [Suspect]
     Active Substance: CARBIDOPA\LEVODOPA
     Dosage: MD 4.2 ML; CRD 1.5 ML/H; ED 1 ML
     Route: 050
     Dates: start: 202102, end: 202102
  9. DUODOPA [Suspect]
     Active Substance: CARBIDOPA\LEVODOPA
     Dosage: MD 3.2 ML; CRD 2.5 ML/H; ED 1.0 ML
     Route: 050
     Dates: start: 20210316, end: 202103
  10. DUODOPA [Suspect]
     Active Substance: CARBIDOPA\LEVODOPA
     Dosage: MD 3.6 ML; CRD 2.5 ML/H;  ED 1.0 ML
     Route: 050
     Dates: start: 202103, end: 202103
  11. MADOPAR DEPOT [Concomitant]
     Active Substance: BENSERAZIDE HYDROCHLORIDE\LEVODOPA
     Indication: PRODUCT USED FOR UNKNOWN INDICATION
  12. DUODOPA [Suspect]
     Active Substance: CARBIDOPA\LEVODOPA
     Indication: PARKINSON^S DISEASE
     Dosage: MD 4.2 ML; CRD 2.9 ML/H;  ED 1 ML
     Route: 050
     Dates: start: 20180719, end: 202102
  13. DUODOPA [Suspect]
     Active Substance: CARBIDOPA\LEVODOPA
     Dosage: MD 2.4 ML; CRD 2.1 ML/H; ED 1 ML
     Route: 050
     Dates: start: 2021, end: 202103
  14. DUODOPA [Suspect]
     Active Substance: CARBIDOPA\LEVODOPA
     Dosage: MD 2.4 ML; CRD 2.3 ML/H; ED 1 ML
     Route: 050
     Dates: start: 202103, end: 202103
  15. QUETIAPIN [Concomitant]
     Active Substance: QUETIAPINE
     Indication: PRODUCT USED FOR UNKNOWN INDICATION
  16. DUODOPA [Suspect]
     Active Substance: CARBIDOPA\LEVODOPA
     Dosage: MD 4.2 ML; CRD 1.7 ML/H;  ED 1 ML
     Route: 050
     Dates: start: 202102, end: 202102

REACTIONS (6)
  - Ultrasound liver abnormal [Unknown]
  - Hepatitis [Recovered/Resolved]
  - Hepatic neoplasm [Not Recovered/Not Resolved]
  - Pyrexia [Recovered/Resolved]
  - Abdominal pain upper [Recovered/Resolved]
  - On and off phenomenon [Recovering/Resolving]

NARRATIVE: CASE EVENT DATE: 20201031
